FAERS Safety Report 4733213-X (Version None)
Quarter: 2005Q3

REPORT INFORMATION
  Report Type: 
  Country: None (occurrence: None)
  Receive Date: 20050801
  Receipt Date: 20050801
  Transmission Date: 20060218
  Serious: Yes (Hospitalization)
  Sender: FDA-Public Use
  Company Number: None

PATIENT
  Age: 60 Year
  Sex: Male

DRUGS (7)
  1. FUROSEMIDE [Suspect]
     Indication: HYPERTENSION
     Dosage: 60 MG BID
     Dates: start: 19950627
  2. PREDNISONE [Concomitant]
  3. ALENDRONATE [Concomitant]
  4. AZATHIOPRINE [Concomitant]
  5. ZOCOR [Concomitant]
  6. IRBESARTAN [Concomitant]
  7. ACETAMINOPHEN [Concomitant]

REACTIONS (1)
  - RENAL FAILURE ACUTE [None]
